FAERS Safety Report 5709324-9 (Version None)
Quarter: 2008Q2

REPORT INFORMATION
  Report Type: 
  Country: None (occurrence: None)
  Receive Date: 20080417
  Receipt Date: 20080417
  Transmission Date: 20081010
  Serious: Yes (Other)
  Sender: FDA-Public Use
  Company Number: None

PATIENT
  Age: 62 Year
  Sex: Female
  Weight: 83.9154 kg

DRUGS (1)
  1. VANCOMYCIN [Suspect]
     Indication: KNEE ARTHROPLASTY
     Dosage: IV
     Route: 042

REACTIONS (2)
  - PRURITUS [None]
  - RASH [None]
